FAERS Safety Report 20512135 (Version 1)
Quarter: 2022Q1

REPORT INFORMATION
  Report Type: Spontaneous
  Country: US (occurrence: None)
  Receive Date: 20220224
  Receipt Date: 20220224
  Transmission Date: 20220424
  Serious: No
  Sender: FDA-Public Use
  Company Number: None

PATIENT
  Sex: Female

DRUGS (1)
  1. MAVYRET [Suspect]
     Active Substance: GLECAPREVIR\PIBRENTASVIR
     Indication: Hepatitis C
     Dosage: OTHER QUANTITY : 300/120 MG;?FREQUENCY : DAILY;?
     Route: 048
     Dates: start: 202201

REACTIONS (3)
  - Arthralgia [None]
  - Peripheral swelling [None]
  - Fatigue [None]
